FAERS Safety Report 5733800-6 (Version None)
Quarter: 2008Q2

REPORT INFORMATION
  Report Type: 
  Country: None (occurrence: None)
  Receive Date: 20080509
  Receipt Date: 20080430
  Transmission Date: 20081010
  Serious: Yes (Congenital Anomaly)
  Sender: FDA-Public Use
  Company Number: GB-ABBOTT-07P-167-0367780-00

PATIENT
  Sex: Male

DRUGS (2)
  1. VALPROIC ACID [Suspect]
     Indication: DRUG EXPOSURE DURING PREGNANCY
  2. VALPROIC ACID [Suspect]
     Indication: EPILEPSY

REACTIONS (21)
  - ABNORMAL BEHAVIOUR [None]
  - ASOCIAL BEHAVIOUR [None]
  - CONGENITAL BOWING OF LONG BONES [None]
  - CONGENITAL HAIR DISORDER [None]
  - CONGENITAL HAND MALFORMATION [None]
  - CONGENITAL JOINT MALFORMATION [None]
  - CONGENITAL NOSE MALFORMATION [None]
  - DEVELOPMENTAL DELAY [None]
  - DISTURBANCE IN ATTENTION [None]
  - DRUG EXPOSURE DURING PREGNANCY [None]
  - DYSMORPHISM [None]
  - FOETAL ANTICONVULSANT SYNDROME [None]
  - GRAND MAL CONVULSION [None]
  - LEARNING DISORDER [None]
  - LIGAMENT LAXITY [None]
  - LIMB MALFORMATION [None]
  - LIP DISORDER [None]
  - LOWER RESPIRATORY TRACT INFECTION [None]
  - PHONOLOGICAL DISORDER [None]
  - SLEEP DISORDER [None]
  - SPEECH DISORDER DEVELOPMENTAL [None]
